FAERS Safety Report 8428333-2 (Version None)
Quarter: 2012Q2

REPORT INFORMATION
  Report Type: 
  Country: None (occurrence: None)
  Receive Date: 20120612
  Receipt Date: 20120607
  Transmission Date: 20120825
  Serious: Yes (Hospitalization)
  Sender: FDA-Public Use
  Company Number: US-AMGEN-USASP2012035742

PATIENT
  Sex: Female

DRUGS (12)
  1. VITAMIN D [Concomitant]
     Dosage: UNK
  2. SIMVASTATIN [Concomitant]
     Dosage: UNK
  3. CLONIDINE [Concomitant]
  4. LEVOTHYROXINE SODIUM [Concomitant]
     Dosage: UNK
  5. PROLIA [Suspect]
     Indication: OSTEOPOROSIS POSTMENOPAUSAL
     Dates: start: 20110601
  6. OMEPRAZOLE [Concomitant]
     Dosage: UNK
  7. CALCITRIOL [Concomitant]
     Dosage: UNK
  8. MINOXIDIL [Concomitant]
  9. DIOVAN [Concomitant]
     Dosage: UNK
  10. FUROSEMIDE [Concomitant]
     Dosage: UNK
  11. METOPROLOL TARTRATE [Concomitant]
     Dosage: UNK
  12. IRON [Concomitant]
     Dosage: UNK

REACTIONS (5)
  - WEIGHT DECREASED [None]
  - DIARRHOEA [None]
  - NAUSEA [None]
  - ERUCTATION [None]
  - ABDOMINAL RIGIDITY [None]
